FAERS Safety Report 18767799 (Version 1)
Quarter: 2021Q1

REPORT INFORMATION
  Report Type: Spontaneous
  Country: US (occurrence: US)
  Receive Date: 20210121
  Receipt Date: 20210121
  Transmission Date: 20210419
  Serious: Yes (Other)
  Sender: FDA-Public Use
  Company Number: US-SUNOVION-2021SUN000118

PATIENT
  Age: 61 Year
  Sex: Female

DRUGS (1)
  1. LATUDA [Suspect]
     Active Substance: LURASIDONE HYDROCHLORIDE
     Indication: BIPOLAR DISORDER
     Dosage: 40 MG, HS
     Route: 048

REACTIONS (4)
  - Multiple sclerosis [Unknown]
  - Mania [Unknown]
  - Therapeutic response unexpected [Unknown]
  - Fall [Unknown]
